FAERS Safety Report 9356508 (Version 2)
Quarter: 2013Q3

REPORT INFORMATION
  Report Type: Spontaneous
  Country: GB (occurrence: GB)
  Receive Date: 20130619
  Receipt Date: 20130822
  Transmission Date: 20140515
  Serious: Yes (Hospitalization, Other)
  Sender: FDA-Public Use
  Company Number: GB-ABBOTT-13P-167-1105786-00

PATIENT
  Age: 65 Year
  Sex: Male

DRUGS (4)
  1. PROSTAP [Suspect]
     Indication: PROSTATE CANCER
     Route: 065
     Dates: start: 201304
  2. PROSTAP [Suspect]
     Dates: start: 201305
  3. LUPRON DEPOT [Suspect]
     Indication: PROSTATE CANCER
     Route: 065
     Dates: start: 201305
  4. DEXAMETHASONE [Concomitant]
     Indication: PRODUCT USED FOR UNKNOWN INDICATION

REACTIONS (2)
  - Respiratory failure [Recovering/Resolving]
  - Pneumonitis [Recovering/Resolving]
